FAERS Safety Report 18192458 (Version 2)
Quarter: 2020Q3

REPORT INFORMATION
  Report Type: Spontaneous
  Country: US (occurrence: US)
  Receive Date: 20200825
  Receipt Date: 20200904
  Transmission Date: 20201103
  Serious: Yes (Hospitalization)
  Sender: FDA-Public Use
  Company Number: US-BAUSCH-BL-2020-023869

PATIENT
  Age: 60 Year
  Sex: Female

DRUGS (2)
  1. XIFAXAN [Suspect]
     Active Substance: RIFAXIMIN
     Indication: HEPATIC ENCEPHALOPATHY
     Dosage: STARTED ABOUT 5?6 YEARS PRIOR TO INITIAL REPORT
     Route: 048
     Dates: end: 20200809
  2. XIFAXAN [Suspect]
     Active Substance: RIFAXIMIN
     Route: 042
     Dates: start: 2020, end: 2020

REACTIONS (9)
  - Ammonia increased [Unknown]
  - Blood glucose increased [Recovered/Resolved]
  - Product use complaint [Unknown]
  - Hypophagia [Recovered/Resolved]
  - Incorrect route of product administration [Unknown]
  - Urinary tract infection [Recovered/Resolved]
  - Dehydration [Recovered/Resolved]
  - Kidney infection [Recovered/Resolved]
  - Hypertension [Recovered/Resolved]

NARRATIVE: CASE EVENT DATE: 2020
